FAERS Safety Report 23447655 (Version 2)
Quarter: 2025Q3

REPORT INFORMATION
  Report Type: Report from Study
  Country: US (occurrence: US)
  Receive Date: 20240126
  Receipt Date: 20250917
  Transmission Date: 20251020
  Serious: Yes (Hospitalization)
  Sender: JAZZ
  Company Number: US-JAZZ PHARMACEUTICALS-2024-US-001456

PATIENT
  Sex: Male

DRUGS (3)
  1. EPIDIOLEX [Suspect]
     Active Substance: CANNABIDIOL
     Indication: Idiopathic generalised epilepsy
     Dosage: 3.5 MILLILITER, TID
     Dates: start: 201912
  2. EPIDIOLEX [Suspect]
     Active Substance: CANNABIDIOL
     Indication: Visual pathway disorder
     Dosage: 4 MILLILITER, TID
     Dates: start: 201912
  3. EPIDIOLEX [Suspect]
     Active Substance: CANNABIDIOL
     Indication: Dandy-Walker syndrome

REACTIONS (2)
  - Hospitalisation [Unknown]
  - Off label use [Unknown]
